FAERS Safety Report 16964103 (Version 1)
Quarter: 2019Q4

REPORT INFORMATION
  Report Type: Spontaneous
  Country: BR (occurrence: BR)
  Receive Date: 20191026
  Receipt Date: 20191026
  Transmission Date: 20200122
  Serious: Yes (Other)
  Sender: FDA-Public Use
  Company Number: NVSC2019BR017184

PATIENT
  Sex: Female

DRUGS (1)
  1. GILENYA [Suspect]
     Active Substance: FINGOLIMOD HYDROCHLORIDE
     Indication: PRODUCT USED FOR UNKNOWN INDICATION
     Route: 065

REACTIONS (9)
  - Hypoaesthesia [Unknown]
  - Musculoskeletal discomfort [Unknown]
  - Multiple sclerosis relapse [Unknown]
  - Malaise [Unknown]
  - Dizziness [Unknown]
  - Limb discomfort [Unknown]
  - Vision blurred [Unknown]
  - Gait disturbance [Unknown]
  - Headache [Unknown]
